FAERS Safety Report 25145178 (Version 2)
Quarter: 2025Q3

REPORT INFORMATION
  Report Type: Spontaneous
  Country: US (occurrence: US)
  Receive Date: 20250401
  Receipt Date: 20250915
  Transmission Date: 20251021
  Serious: No
  Sender: SANOFI AVENTIS
  Company Number: US-SA-2025SA091601

PATIENT
  Age: 64 Year
  Sex: Male
  Weight: 77.27 kg

DRUGS (2)
  1. DUPIXENT [Suspect]
     Active Substance: DUPILUMAB
     Indication: Dermatitis atopic
     Dosage: 300 MG, QOW
     Route: 058
     Dates: start: 2024
  2. DRAMAMINE [Concomitant]
     Active Substance: DIMENHYDRINATE

REACTIONS (8)
  - Eye discharge [Unknown]
  - Vertigo [Unknown]
  - Nausea [Unknown]
  - Skin exfoliation [Unknown]
  - Dizziness [Unknown]
  - Erythema of eyelid [Unknown]
  - Eye pruritus [Unknown]
  - Eye irritation [Unknown]

NARRATIVE: CASE EVENT DATE: 20250101
